FAERS Safety Report 8609449-4 (Version None)
Quarter: 2012Q3

REPORT INFORMATION
  Report Type: 
  Country: None (occurrence: None)
  Receive Date: 20120821
  Receipt Date: 20120815
  Transmission Date: 20120928
  Serious: Yes (Other)
  Sender: FDA-Public Use
  Company Number: US-AMGEN-USASP2012052064

PATIENT
  Age: 17 Year
  Sex: Male

DRUGS (3)
  1. EPOETIN ALFA [Suspect]
     Indication: RENAL FAILURE CHRONIC
     Dosage: UNK
  2. ANTIHYPERTENSIVES [Concomitant]
     Dosage: UNK
  3. DARBEPOETIN ALFA [Suspect]
     Indication: RENAL FAILURE CHRONIC
     Dosage: 5 MUG/KG, UNK

REACTIONS (7)
  - ANTI-ERYTHROPOIETIN ANTIBODY POSITIVE [None]
  - THERAPEUTIC RESPONSE DECREASED [None]
  - NEUTRALISING ANTIBODIES POSITIVE [None]
  - ANAEMIA [None]
  - APLASIA PURE RED CELL [None]
  - FATIGUE [None]
  - PAIN [None]
